FAERS Safety Report 4989015-2 (Version None)
Quarter: 2006Q2

REPORT INFORMATION
  Report Type: 
  Country: None (occurrence: None)
  Receive Date: 20060502
  Receipt Date: 20060425
  Transmission Date: 20061013
  Serious: Yes (Hospitalization)
  Sender: FDA-Public Use
  Company Number: US-JNJFOC-20060405586

PATIENT
  Age: 61 Year
  Sex: Male

DRUGS (5)
  1. TYLENOL (CAPLET) [Suspect]
     Indication: SCIATICA
     Route: 048
  2. TYLENOL (CAPLET) [Suspect]
     Indication: NERVE COMPRESSION
     Route: 048
  3. ACTOS [Concomitant]
     Indication: DIABETES MELLITUS
     Dosage: QD; } 5 YEARS
  4. AMARYL [Concomitant]
     Indication: DIABETES MELLITUS
     Dosage: QD; } 5 YEARS
  5. WINE [Concomitant]

REACTIONS (4)
  - DIZZINESS [None]
  - HEART RATE INCREASED [None]
  - LOSS OF CONSCIOUSNESS [None]
  - PULSE ABSENT [None]
